FAERS Safety Report 4349299-0 (Version None)
Quarter: 2004Q2

REPORT INFORMATION
  Report Type: 
  Country: None (occurrence: None)
  Receive Date: 20040428
  Receipt Date: 20011231
  Transmission Date: 20050107
  Serious: Yes (Hospitalization, Other)
  Sender: FDA-Public Use
  Company Number: US-BRISTOL-MYERS SQUIBB COMPANY-11645876

PATIENT
  Age: 46 Year
  Sex: Female

DRUGS (3)
  1. BMS224818 [Concomitant]
     Dosage: -SIXTH COURES OF TREATMENT. NOT REALLOCATED
     Route: 042
     Dates: start: 20011016, end: 20011229
  2. PREDNISONE [Suspect]
     Dates: start: 20011019
  3. CELLCEPT [Suspect]
     Dates: start: 20011016

REACTIONS (3)
  - GLOMERULONEPHRITIS FOCAL [None]
  - KIDNEY TRANSPLANT REJECTION [None]
  - NEPHROTIC SYNDROME [None]
